FAERS Safety Report 16536482 (Version 1)
Quarter: 2019Q3

REPORT INFORMATION
  Report Type: Spontaneous
  Country: US (occurrence: US)
  Receive Date: 20190706
  Receipt Date: 20190706
  Transmission Date: 20191004
  Serious: Yes (Hospitalization, Other)
  Sender: FDA-Public Use
  Company Number: US-LUPIN PHARMACEUTICALS INC.-2019-04217

PATIENT
  Age: 61 Year
  Sex: Female

DRUGS (9)
  1. SULFAMETHOXAZOLE AND TRIMETHOPRIM [Suspect]
     Active Substance: SULFAMETHOXAZOLE\TRIMETHOPRIM
     Indication: BRONCHOPULMONARY ASPERGILLOSIS
  2. PREDNISONE. [Concomitant]
     Active Substance: PREDNISONE
     Indication: ASTHMA
     Dosage: UNK
     Route: 065
  3. PREDNISONE. [Concomitant]
     Active Substance: PREDNISONE
     Indication: HYPERTENSION
  4. SULFAMETHOXAZOLE AND TRIMETHOPRIM [Suspect]
     Active Substance: SULFAMETHOXAZOLE\TRIMETHOPRIM
     Indication: HYPERTENSION
  5. ITRACONAZOLE. [Suspect]
     Active Substance: ITRACONAZOLE
     Indication: ASTHMA
     Dosage: UNK
     Route: 065
  6. PREDNISONE. [Concomitant]
     Active Substance: PREDNISONE
     Indication: BRONCHOPULMONARY ASPERGILLOSIS
  7. SULFAMETHOXAZOLE AND TRIMETHOPRIM [Suspect]
     Active Substance: SULFAMETHOXAZOLE\TRIMETHOPRIM
     Indication: ASTHMA
     Dosage: UNK
     Route: 065
  8. ITRACONAZOLE. [Suspect]
     Active Substance: ITRACONAZOLE
     Indication: HYPERTENSION
  9. ITRACONAZOLE. [Suspect]
     Active Substance: ITRACONAZOLE
     Indication: BRONCHOPULMONARY ASPERGILLOSIS

REACTIONS (3)
  - Hypercholesterolaemia [Recovered/Resolved]
  - Pseudohyponatraemia [Unknown]
  - Cholestatic liver injury [Recovered/Resolved]
